FAERS Safety Report 18365788 (Version 1)
Quarter: 2020Q4

REPORT INFORMATION
  Report Type: Spontaneous
  Country: PL (occurrence: PL)
  Receive Date: 20201009
  Receipt Date: 20201009
  Transmission Date: 20210114
  Serious: Yes (Hospitalization, Other)
  Sender: FDA-Public Use
  Company Number: PL-TEVA-2020-PL-1837904

PATIENT
  Age: 64 Year
  Sex: Male

DRUGS (9)
  1. METOPROLOL. [Suspect]
     Active Substance: METOPROLOL
     Route: 065
  2. ENTRESTO [Suspect]
     Active Substance: SACUBITRIL\VALSARTAN
     Indication: PRODUCT USED FOR UNKNOWN INDICATION
     Dosage: 200 MILLIGRAM DAILY;
     Route: 065
  3. VALSARTAN. [Suspect]
     Active Substance: VALSARTAN
     Indication: PRODUCT USED FOR UNKNOWN INDICATION
     Route: 065
  4. EPLERENONE. [Concomitant]
     Active Substance: EPLERENONE
     Dosage: 25 MILLIGRAM DAILY; 1 DOSAGE FORMS (25 MG,1 IN 1 D)
  5. METFORMIN [Suspect]
     Active Substance: METFORMIN HYDROCHLORIDE
     Indication: TYPE 2 DIABETES MELLITUS
     Dosage: 3 DOSAGE FORMS DAILY;
     Route: 065
  6. VALSARTAN. [Suspect]
     Active Substance: VALSARTAN
     Dosage: 80 MILLIGRAM DAILY; 2 DF (2X40 MG) (2 DOSAGE FORMS)
     Route: 065
  7. METOPROLOL. [Suspect]
     Active Substance: METOPROLOL
     Indication: PRODUCT USED FOR UNKNOWN INDICATION
     Dosage: 237.5 MILLIGRAM DAILY;
     Route: 065
  8. GLICLAZIDE [Suspect]
     Active Substance: GLICLAZIDE
     Indication: PRODUCT USED FOR UNKNOWN INDICATION
     Dosage: 30 MILLIGRAM DAILY;
     Route: 065
  9. ATORVASTATIN [Suspect]
     Active Substance: ATORVASTATIN
     Indication: PRODUCT USED FOR UNKNOWN INDICATION
     Dosage: 1 DOSAGE FORMS DAILY; 1 DOSAGE FORMS (40 MG,1 IN 1 D)
     Route: 065

REACTIONS (28)
  - Mitral valve incompetence [Unknown]
  - Hypotonia [Unknown]
  - Conduction disorder [Unknown]
  - Dyspnoea [Unknown]
  - Poor peripheral circulation [Unknown]
  - Pulmonary oedema [Unknown]
  - Rales [Unknown]
  - Peripheral vascular disorder [Unknown]
  - Depressed mood [Unknown]
  - Heart rate irregular [Unknown]
  - Anxiety [Unknown]
  - Chest discomfort [Recovered/Resolved]
  - Asthenia [Unknown]
  - Dehydration [Unknown]
  - Hyperkalaemia [Unknown]
  - Left ventricular dysfunction [Unknown]
  - Cardiac failure acute [Unknown]
  - Type 2 diabetes mellitus [Unknown]
  - Dizziness [Unknown]
  - Pyonephrosis [Unknown]
  - Hypothyroidism [Unknown]
  - Peripheral coldness [Unknown]
  - Right ventricular dysfunction [Not Recovered/Not Resolved]
  - Hyperthyroidism [Unknown]
  - Decreased activity [Recovering/Resolving]
  - Arteriosclerosis [Unknown]
  - Hypotension [Unknown]
  - Somnolence [Unknown]

NARRATIVE: CASE EVENT DATE: 2015
